FAERS Safety Report 10873472 (Version 3)
Quarter: 2015Q2

REPORT INFORMATION
  Report Type: Spontaneous
  Country: DE (occurrence: DE)
  Receive Date: 20150227
  Receipt Date: 20150515
  Transmission Date: 20150821
  Serious: Yes (Other)
  Sender: FDA-Public Use
  Company Number: DE-TEVA-544250GER

PATIENT
  Age: 44 Year
  Sex: Female
  Weight: 61 kg

DRUGS (4)
  1. ESTREVA 0,1% GEL [Suspect]
     Active Substance: ESTRADIOL
     Indication: MENOPAUSAL DISORDER
     Dosage: DAILY DOSE: 2 PUMP PRESSES/DAY
     Route: 061
     Dates: start: 201406, end: 20150227
  2. L-THYROXIN 100 [Concomitant]
     Indication: AUTOIMMUNE THYROIDITIS
     Dosage: 100 MICROGRAM DAILY;
     Route: 048
     Dates: start: 1993
  3. IUP MIRENA [Concomitant]
     Indication: CONTRACEPTION
     Dosage: CONTRACEPTIVE COIL
     Dates: start: 2008
  4. CORTISONE CREME [Concomitant]
     Route: 003

REACTIONS (1)
  - Vasculitis [Not Recovered/Not Resolved]

NARRATIVE: CASE EVENT DATE: 201412
